FAERS Safety Report 5850283-6 (Version None)
Quarter: 2008Q3

REPORT INFORMATION
  Report Type: 
  Country: None (occurrence: None)
  Receive Date: 20080731
  Receipt Date: 20080418
  Transmission Date: 20090109
  Serious: No
  Sender: FDA-Public Use
  Company Number: US200804005107

PATIENT
  Age: 50 Year
  Sex: Female

DRUGS (3)
  1. BYETTA [Suspect]
     Indication: DIABETES MELLITUS
     Dosage: 5 UG, 2/D, SUBCUTANEOUS
     Route: 058
     Dates: start: 20080416
  2. METFORMIN HCL [Concomitant]
  3. GLIMEPIRIDE [Concomitant]

REACTIONS (6)
  - FEELING ABNORMAL [None]
  - INJECTION SITE HAEMORRHAGE [None]
  - JOINT STIFFNESS [None]
  - PAIN [None]
  - SLUGGISHNESS [None]
  - STOMACH DISCOMFORT [None]
